FAERS Safety Report 5536974-5 (Version None)
Quarter: 2007Q4

REPORT INFORMATION
  Report Type: 
  Country: None (occurrence: None)
  Receive Date: 20071120
  Receipt Date: 20070818
  Transmission Date: 20080405
  Serious: No
  Sender: FDA-Public Use
  Company Number: WAES 0709USA03130

PATIENT
  Age: 80 Year
  Sex: Male

DRUGS (4)
  1. JANUVIA [Suspect]
     Dosage: PO
     Route: 048
  2. ADVAIR DISKUS 100/50 [Concomitant]
  3. FLOMAX [Concomitant]
  4. METFORMIN HCL [Concomitant]

REACTIONS (1)
  - ORTHOSTATIC HYPOTENSION [None]
